FAERS Safety Report 7239182-5 (Version None)
Quarter: 2011Q1

REPORT INFORMATION
  Report Type: 
  Country: None (occurrence: None)
  Receive Date: 20110121
  Receipt Date: 20101117
  Transmission Date: 20110831
  Serious: Yes (Life-Threatening, Hospitalization)
  Sender: FDA-Public Use
  Company Number: DE-GENZYME-FLUD-1000043

PATIENT
  Age: 69 Year
  Sex: Male

DRUGS (23)
  1. FLUDARA [Suspect]
     Dosage: 47.5 MG, UNK
     Route: 042
  2. SEVREDOL [Concomitant]
     Indication: PRODUCT USED FOR UNKNOWN INDICATION
     Dosage: 10 MG, UNK
     Dates: start: 20100517, end: 20100517
  3. RITUXIMAB [Suspect]
     Dosage: 950 MG, UNK
     Route: 042
  4. CYCLOPHOSPHAMIDE [Suspect]
     Dosage: 480 MG, UNK
     Route: 042
  5. CYCLOPHOSPHAMIDE [Suspect]
     Dosage: 480 MG, UNK
     Route: 042
     Dates: end: 20100507
  6. CYCLOPHOSPHAMIDE [Suspect]
     Dosage: 480 MG, UNK
     Route: 042
  7. MCP [Concomitant]
     Indication: PRODUCT USED FOR UNKNOWN INDICATION
     Dosage: 30 MG, UNK
     Dates: start: 20100517, end: 20100517
  8. RITUXIMAB [Suspect]
     Indication: CHRONIC LYMPHOCYTIC LEUKAEMIA
     Dosage: 950 MG, UNK
     Route: 042
     Dates: start: 20091214
  9. RITUXIMAB [Suspect]
     Dosage: 950 MG, UNK
     Route: 042
  10. RITUXIMAB [Suspect]
     Dosage: 950 MG, UNK
     Route: 042
  11. MST [Concomitant]
     Indication: PRODUCT USED FOR UNKNOWN INDICATION
     Dosage: 20 MG, UNK
     Dates: start: 20100517, end: 20100517
  12. FLUDARA [Suspect]
     Dosage: 47.5 MG, UNK
     Route: 042
     Dates: end: 20100507
  13. CYCLOPHOSPHAMIDE [Suspect]
     Indication: CHRONIC LYMPHOCYTIC LEUKAEMIA
     Dosage: 480 MG, UNK
     Route: 042
     Dates: start: 20091216
  14. CYCLOPHOSPHAMIDE [Suspect]
     Dosage: 480 MG, UNK
     Route: 042
  15. FLUDARA [Suspect]
     Dosage: 47.5 MG, UNK
     Route: 042
  16. DICLO 50 [Concomitant]
     Indication: PRODUCT USED FOR UNKNOWN INDICATION
     Dosage: 150 MG, UNK
     Dates: start: 20100428, end: 20100517
  17. FLUDARA [Suspect]
     Indication: CHRONIC LYMPHOCYTIC LEUKAEMIA
     Dosage: 47.5 MG, UNK
     Route: 042
     Dates: start: 20091216
  18. FLUDARA [Suspect]
     Dosage: 47.5 MG, UNK
     Route: 042
  19. FLUDARA [Suspect]
     Dosage: 47.5 MG, UNK
     Route: 042
  20. RITUXIMAB [Suspect]
     Dosage: 950 MG, UNK
     Route: 042
  21. RITUXIMAB [Suspect]
     Dosage: 950 MG, UNK
     Route: 042
     Dates: end: 20100505
  22. CYCLOPHOSPHAMIDE [Suspect]
     Dosage: 480 MG, UNK
     Route: 042
  23. NOVALGIN [Concomitant]
     Indication: PRODUCT USED FOR UNKNOWN INDICATION
     Dosage: 3000 MG, UNK
     Dates: end: 20100517

REACTIONS (2)
  - PERITONITIS [None]
  - LARGE INTESTINE PERFORATION [None]
